FAERS Safety Report 25264639 (Version 1)
Quarter: 2025Q2

REPORT INFORMATION
  Report Type: Spontaneous
  Country: US (occurrence: None)
  Receive Date: 20250502
  Receipt Date: 20250502
  Transmission Date: 20250716
  Serious: Yes (Other)
  Sender: FDA-CTU
  Company Number: None

PATIENT
  Age: 71 Year
  Sex: Male
  Weight: 91.63 kg

DRUGS (15)
  1. FINASTERIDE [Suspect]
     Active Substance: FINASTERIDE
     Indication: Benign prostatic hyperplasia
     Dosage: 1 TABLETS ONCE A DAY TAKEN BY MOUTH?
     Route: 048
     Dates: start: 20241009, end: 20250205
  2. AMLODIPINE [Concomitant]
     Active Substance: AMLODIPINE BESYLATE
  3. ASPIRIN [Concomitant]
     Active Substance: ASPIRIN
  4. ATORVASTATIN [Concomitant]
     Active Substance: ATORVASTATIN
  5. FOLIC ACID [Concomitant]
     Active Substance: FOLIC ACID
  6. HYDROXYCHLOROQUINE [Concomitant]
     Active Substance: HYDROXYCHLOROQUINE
  7. METHOTREXATE [Concomitant]
     Active Substance: METHOTREXATE
  8. Pantropozal [Concomitant]
  9. Portassium citrate [Concomitant]
  10. PREDNISONE [Concomitant]
     Active Substance: PREDNISONE
  11. TAMSULOSIN [Suspect]
     Active Substance: TAMSULOSIN
  12. VITAMIN C [Concomitant]
     Active Substance: ASCORBIC ACID
  13. VITAMIN D [Concomitant]
     Active Substance: VITAMIN D NOS
  14. IRON [Concomitant]
     Active Substance: IRON
  15. GELUSIL [Concomitant]
     Active Substance: ALUMINUM HYDROXIDE\DIMETHICONE\MAGNESIUM HYDROXIDE

REACTIONS (2)
  - Sexual dysfunction [None]
  - Functional gastrointestinal disorder [None]

NARRATIVE: CASE EVENT DATE: 20241010
